FAERS Safety Report 24344585 (Version 1)
Quarter: 2024Q3

REPORT INFORMATION
  Report Type: Spontaneous
  Country: RO (occurrence: RO)
  Receive Date: 20240920
  Receipt Date: 20240920
  Transmission Date: 20241017
  Serious: Yes (Other)
  Sender: INCYTE
  Company Number: RO-002147023-NVSC2024RO183904

PATIENT

DRUGS (5)
  1. RUXOLITINIB [Suspect]
     Active Substance: RUXOLITINIB
     Indication: Primary myelofibrosis
     Dosage: 20 MG DAILY
     Route: 065
     Dates: start: 2020
  2. FEDRATINIB [Suspect]
     Active Substance: FEDRATINIB
     Indication: Primary myelofibrosis
     Dosage: 200 MG DAILY
     Route: 065
  3. FEDRATINIB [Suspect]
     Active Substance: FEDRATINIB
     Dosage: INCREASED TO 300 MG DAILY THE FOLLOWING MONTH,
     Route: 065
  4. FEDRATINIB [Suspect]
     Active Substance: FEDRATINIB
     Dosage: RESPECTIVELY 400 SANG DAILY
     Route: 065
  5. CYTARABINE [Suspect]
     Active Substance: CYTARABINE
     Indication: Primary myelofibrosis
     Dosage: 20 MG
     Route: 065

REACTIONS (4)
  - Basal cell carcinoma [Unknown]
  - Squamous cell carcinoma [Unknown]
  - Drug ineffective [Unknown]
  - Skin cancer [Unknown]
